FAERS Safety Report 21741826 (Version 1)
Quarter: 2022Q4

REPORT INFORMATION
  Report Type: Spontaneous
  Country: DE (occurrence: DE)
  Receive Date: 20221216
  Receipt Date: 20221216
  Transmission Date: 20230113
  Serious: Yes (Life-Threatening, Hospitalization, Other)
  Sender: FDA-Public Use
  Company Number: None

PATIENT
  Age: 69 Year
  Sex: Female
  Weight: 47 kg

DRUGS (4)
  1. XARELTO [Suspect]
     Active Substance: RIVAROXABAN
     Indication: Atrial fibrillation
     Dosage: 20 MG, QD
     Route: 048
     Dates: start: 2022, end: 20221114
  2. OPIPRAMOL [Suspect]
     Active Substance: OPIPRAMOL
     Indication: Anxiety
     Route: 048
     Dates: start: 202210, end: 20221112
  3. MELPERONE [Suspect]
     Active Substance: MELPERONE
     Indication: Anxiety
     Route: 048
     Dates: start: 202210, end: 20221112
  4. METAMIZOLE SODIUM [Concomitant]
     Active Substance: METAMIZOLE SODIUM
     Indication: Pain
     Route: 048
     Dates: start: 202209

REACTIONS (5)
  - Hepatitis acute [Recovering/Resolving]
  - Hepatocellular injury [Recovering/Resolving]
  - Jaundice [Recovering/Resolving]
  - Nausea [Recovering/Resolving]
  - Abdominal pain upper [Recovering/Resolving]

NARRATIVE: CASE EVENT DATE: 20220801
